FAERS Safety Report 4422502-4 (Version None)
Quarter: 2004Q3

REPORT INFORMATION
  Report Type: 
  Country: None (occurrence: None)
  Receive Date: 20040810
  Receipt Date: 20040730
  Transmission Date: 20050211
  Serious: Yes (Hospitalization)
  Sender: FDA-Public Use
  Company Number: GB-BRISTOL-MYERS SQUIBB COMPANY-12665550

PATIENT
  Sex: Female

DRUGS (3)
  1. DIDANOSINE [Suspect]
  2. ZIDOVUDINE [Suspect]
  3. VIRAMUNE [Suspect]

REACTIONS (2)
  - HAEMATEMESIS [None]
  - PORTAL VEIN THROMBOSIS [None]
